FAERS Safety Report 14261506 (Version 2)
Quarter: 2017Q4

REPORT INFORMATION
  Report Type: Spontaneous
  Country: JP (occurrence: JP)
  Receive Date: 20171208
  Receipt Date: 20171221
  Transmission Date: 20180321
  Serious: Yes (Death)
  Sender: FDA-Public Use
  Company Number: JP-ROCHE-2034313

PATIENT
  Age: 67 Year
  Sex: Male
  Weight: 64 kg

DRUGS (5)
  1. PLAVIX [Concomitant]
     Active Substance: CLOPIDOGREL BISULFATE
     Indication: CEREBRAL INFARCTION
     Dosage: DOSAGE IS UNCERTAIN.
     Route: 048
     Dates: start: 20171111
  2. XELODA [Suspect]
     Active Substance: CAPECITABINE
     Indication: INGUINAL HERNIA
     Route: 048
     Dates: start: 20171115, end: 20171115
  3. ELIQUIS [Concomitant]
     Active Substance: APIXABAN
     Route: 065
     Dates: start: 20171111
  4. SENNOSIDE [Concomitant]
     Active Substance: SENNOSIDES
     Route: 065
     Dates: start: 20171111
  5. BROTIZOLAM [Concomitant]
     Active Substance: BROTIZOLAM
     Route: 065
     Dates: start: 20171111

REACTIONS (2)
  - Brain stem haemorrhage [Fatal]
  - Medication error [Unknown]

NARRATIVE: CASE EVENT DATE: 20171116
